FAERS Safety Report 18124503 (Version 1)
Quarter: 2020Q3

REPORT INFORMATION
  Report Type: Spontaneous
  Country: US (occurrence: US)
  Receive Date: 20200807
  Receipt Date: 20200807
  Transmission Date: 20201103
  Serious: No
  Sender: FDA-Public Use
  Company Number: US-PFIZER INC-2020301034

PATIENT
  Age: 50 Year
  Sex: Female

DRUGS (6)
  1. CELEBREX [Concomitant]
     Active Substance: CELECOXIB
     Dosage: 100 MG
  2. XELJANZ XR [Suspect]
     Active Substance: TOFACITINIB CITRATE
     Indication: RHEUMATOID ARTHRITIS
     Dosage: 11 MG, DAILY
     Route: 048
     Dates: start: 201906
  3. CALCIUM [Concomitant]
     Active Substance: CALCIUM
     Dosage: 600 MG
  4. METHOTREXATE. [Concomitant]
     Active Substance: METHOTREXATE
     Dosage: UNK (1 G VIAL)
  5. PREDNISONE. [Concomitant]
     Active Substance: PREDNISONE
     Dosage: 10 MG
  6. PROBIOTIC 10 [Concomitant]
     Active Substance: DIETARY SUPPLEMENT\PROBIOTICS
     Dosage: UNK

REACTIONS (1)
  - Blood cholesterol increased [Unknown]
